FAERS Safety Report 13446871 (Version 2)
Quarter: 2017Q2

REPORT INFORMATION
  Report Type: Spontaneous
  Country: US (occurrence: US)
  Receive Date: 20170417
  Receipt Date: 20170531
  Transmission Date: 20170830
  Serious: Yes (Other)
  Sender: FDA-Public Use
  Company Number: US-PFIZER INC-2017157019

PATIENT
  Age: 65 Year
  Sex: Female
  Weight: 71.2 kg

DRUGS (12)
  1. CARBOPLATIN. [Suspect]
     Active Substance: CARBOPLATIN
     Dosage: UNK, CYCLIC (CYCLE 5)
     Dates: start: 20160207
  2. ETOPOSIDE. [Suspect]
     Active Substance: ETOPOSIDE
     Dosage: UNK, CYCLIC (CYCLE 5)
     Dates: start: 20160207
  3. CARBOPLATIN. [Suspect]
     Active Substance: CARBOPLATIN
     Indication: BREAST CANCER FEMALE
     Dosage: UNK, CYCLIC (CYCLE 1)
     Dates: start: 20151103
  4. ETOPOSIDE. [Suspect]
     Active Substance: ETOPOSIDE
     Indication: BREAST CANCER FEMALE
     Dosage: UNK, CYCLIC (CYCLE 1)
     Dates: start: 20151103
  5. ETOPOSIDE. [Suspect]
     Active Substance: ETOPOSIDE
     Dosage: UNK, CYCLIC (CYCLE 2)
     Dates: start: 20151214
  6. ETOPOSIDE. [Suspect]
     Active Substance: ETOPOSIDE
     Dosage: UNK, CYCLIC (CYCLE 4)
     Dates: start: 20160127
  7. CARBOPLATIN. [Suspect]
     Active Substance: CARBOPLATIN
     Dosage: UNK, CYCLIC (CYCLE 3)
     Dates: start: 20160106
  8. CARBOPLATIN. [Suspect]
     Active Substance: CARBOPLATIN
     Dosage: UNK, CYCLIC (CYCLE 4)
     Dates: start: 20160127
  9. CARBOPLATIN. [Suspect]
     Active Substance: CARBOPLATIN
     Dosage: UNK, CYCLIC (CYCLE 6)
     Dates: start: 20160309
  10. CARBOPLATIN. [Suspect]
     Active Substance: CARBOPLATIN
     Dosage: UNK, CYCLIC (CYCLE 2)
     Dates: start: 20151214
  11. ETOPOSIDE. [Suspect]
     Active Substance: ETOPOSIDE
     Dosage: UNK, CYCLIC (CYCLE 3)
     Dates: start: 20160106
  12. ETOPOSIDE. [Suspect]
     Active Substance: ETOPOSIDE
     Dosage: UNK, CYCLIC (CYCLE 6)
     Dates: start: 20160309

REACTIONS (2)
  - White blood cell count decreased [Recovered/Resolved]
  - Cytopenia [Unknown]

NARRATIVE: CASE EVENT DATE: 20151113
